FAERS Safety Report 6449669-0 (Version None)
Quarter: 2009Q4

REPORT INFORMATION
  Report Type: 
  Country: None (occurrence: None)
  Receive Date: 20091120
  Receipt Date: 20091119
  Transmission Date: 20100525
  Serious: Yes (Death, Life-Threatening, Other)
  Sender: FDA-Public Use
  Company Number: PHHY2009JP46607

PATIENT
  Sex: Male
  Weight: 69 kg

DRUGS (8)
  1. DIOVAN T30230+TAB+HY [Suspect]
     Indication: HYPERTENSION
     Dosage: 80 MG, QD
     Route: 048
     Dates: start: 20071101, end: 20081015
  2. DIOVAN T30230+TAB+HY [Suspect]
     Dosage: 120 MG DAILY
     Route: 048
     Dates: start: 20081016, end: 20090114
  3. CRESTOR [Suspect]
     Dosage: 2.5 MG DAILY
     Route: 048
     Dates: start: 20070110, end: 20081119
  4. TANATRIL [Concomitant]
     Dosage: 5 MG
     Route: 048
     Dates: start: 20040726, end: 20071031
  5. ATELEC [Concomitant]
     Dosage: 10 MG
     Route: 048
     Dates: start: 20070926, end: 20080319
  6. CALBLOCK [Concomitant]
     Dosage: 16 MG
     Dates: start: 20080320
  7. INNOLET 30R [Concomitant]
     Dosage: 22 IU, UNK
     Route: 058
     Dates: start: 20030901
  8. BASEN OD [Concomitant]
     Dosage: 0.9 MG
     Route: 048
     Dates: start: 20060816

REACTIONS (5)
  - ATRIOVENTRICULAR BLOCK COMPLETE [None]
  - BLOOD CHOLESTEROL INCREASED [None]
  - BLOOD CREATINE PHOSPHOKINASE INCREASED [None]
  - DEATH [None]
  - HEART RATE DECREASED [None]
